FAERS Safety Report 19877507 (Version 1)
Quarter: 2021Q3

REPORT INFORMATION
  Report Type: Spontaneous
  Country: US (occurrence: US)
  Receive Date: 20210924
  Receipt Date: 20210924
  Transmission Date: 20211014
  Serious: No
  Sender: FDA-Public Use
  Company Number: US-ALLERGAN-2106428US

PATIENT
  Age: 67 Year
  Sex: Female

DRUGS (1)
  1. SUCRALFATE UNK [Suspect]
     Active Substance: SUCRALFATE
     Indication: GASTRITIS
     Dosage: UNK, BID
     Route: 048

REACTIONS (1)
  - Pruritus [Recovered/Resolved]
